FAERS Safety Report 13424675 (Version 1)
Quarter: 2017Q2

REPORT INFORMATION
  Report Type: Report from Study
  Country: None (occurrence: DE)
  Receive Date: 20170410
  Receipt Date: 20170410
  Transmission Date: 20170830
  Serious: Yes (Hospitalization, Other)
  Sender: FDA-Public Use
  Company Number: DE-ABBVIE-17P-062-1933496-00

PATIENT
  Age: 12 Year
  Sex: Male

DRUGS (2)
  1. MTX [Concomitant]
     Active Substance: METHOTREXATE SODIUM
     Indication: PRODUCT USED FOR UNKNOWN INDICATION
     Dates: start: 20141002, end: 20160401
  2. HUMIRA [Suspect]
     Active Substance: ADALIMUMAB
     Indication: JUVENILE IDIOPATHIC ARTHRITIS
     Route: 058
     Dates: start: 20140311

REACTIONS (5)
  - Joint effusion [Not Recovered/Not Resolved]
  - Arthroscopy [Recovered/Resolved]
  - Suture removal [Recovered/Resolved]
  - Joint dislocation [Not Recovered/Not Resolved]
  - Epiphysiodesis [Recovered/Resolved]

NARRATIVE: CASE EVENT DATE: 20160105
